FAERS Safety Report 5742168-0 (Version None)
Quarter: 2008Q2

REPORT INFORMATION
  Report Type: 
  Country: None (occurrence: None)
  Receive Date: 20080519
  Receipt Date: 20080505
  Transmission Date: 20081010
  Serious: Yes (Hospitalization)
  Sender: FDA-Public Use
  Company Number: CA-BAYER-200810665NA

PATIENT
  Age: 40 Year
  Sex: Female
  Weight: 97 kg

DRUGS (5)
  1. BETASERON [Suspect]
     Indication: RELAPSING-REMITTING MULTIPLE SCLEROSIS
     Dosage: TOTAL DAILY DOSE: 8 MIU
     Route: 058
     Dates: start: 20071011
  2. AMITRIPTYLINE HCL [Concomitant]
     Indication: DEPRESSION
     Route: 048
  3. CELEXA [Concomitant]
     Indication: DEPRESSION
     Route: 048
  4. MEDICATION FOR PAIN [Concomitant]
     Indication: PAIN
  5. ANALGESIA [Concomitant]

REACTIONS (6)
  - BLINDNESS UNILATERAL [None]
  - INJECTION SITE PAIN [None]
  - MULTIPLE SCLEROSIS [None]
  - MYALGIA [None]
  - OPTIC NEURITIS [None]
  - PYREXIA [None]
